FAERS Safety Report 10135529 (Version 2)
Quarter: 2014Q2

REPORT INFORMATION
  Report Type: Report from Study
  Country: TW (occurrence: TW)
  Receive Date: 20140428
  Receipt Date: 20140428
  Transmission Date: 20141212
  Serious: Yes (Other)
  Sender: FDA-Public Use
  Company Number: PHHY2013TW080082

PATIENT
  Age: 85 Year
  Sex: Female

DRUGS (1)
  1. ACLASTA/ZOLEDRONATE [Suspect]
     Indication: OSTEOPOROSIS
     Dosage: 5 MG,UNK
     Route: 042
     Dates: start: 20120105, end: 20131219

REACTIONS (3)
  - Dementia [Not Recovered/Not Resolved]
  - Memory impairment [Unknown]
  - Communication disorder [Unknown]
